FAERS Safety Report 4856474-5 (Version None)
Quarter: 2005Q4

REPORT INFORMATION
  Report Type: 
  Country: None (occurrence: None)
  Receive Date: 20051219
  Receipt Date: 20050221
  Transmission Date: 20060501
  Serious: No
  Sender: FDA-Public Use
  Company Number: US-GLAXOSMITHKLINE-A0546488A

PATIENT
  Age: 78 Year
  Sex: Male

DRUGS (1)
  1. TARGET NTS 21MG [Suspect]

REACTIONS (1)
  - APPLICATION SITE DERMATITIS [None]
